FAERS Safety Report 9745055 (Version 1)
Quarter: 2013Q4

REPORT INFORMATION
  Report Type: Spontaneous
  Country: GB (occurrence: DE)
  Receive Date: 20131211
  Receipt Date: 20131211
  Transmission Date: 20140711
  Serious: Yes (Other)
  Sender: FDA-Public Use
  Company Number: GB-ALEXION PHARMACEUTICALS INC.-A201304079

PATIENT
  Age: 4 Month
  Sex: Female
  Weight: 9 kg

DRUGS (3)
  1. SOLIRIS 300MG [Suspect]
     Indication: HAEMOLYTIC URAEMIC SYNDROME
     Dosage: 300 MG QW
     Route: 042
  2. SOLIRIS 300MG [Suspect]
     Dosage: 300 MG Q3W
     Route: 042
  3. SOLIRIS 300MG [Suspect]
     Dosage: 300 MG, Q2W
     Route: 042

REACTIONS (3)
  - Blood lactate dehydrogenase increased [Not Recovered/Not Resolved]
  - Complement factor increased [Not Recovered/Not Resolved]
  - Inappropriate schedule of drug administration [Unknown]
